FAERS Safety Report 10389661 (Version 1)
Quarter: 2014Q3

REPORT INFORMATION
  Report Type: Spontaneous
  Country: US (occurrence: None)
  Receive Date: 20140813
  Receipt Date: 20140813
  Transmission Date: 20150326
  Serious: Yes (Other)
  Sender: FDA-Public Use
  Company Number: C14 046 AE

PATIENT
  Age: 3 Month
  Sex: Female
  Weight: 5.26 kg

DRUGS (1)
  1. FIRST LANSOPRAZOLE RX [Suspect]
     Active Substance: LANSOPRAZOLE
     Indication: GASTROOESOPHAGEAL REFLUX DISEASE
     Dosage: 2 ML DAILY ORALLY
     Route: 048
     Dates: start: 20140722

REACTIONS (2)
  - Abnormal behaviour [None]
  - Frequent bowel movements [None]

NARRATIVE: CASE EVENT DATE: 20140725
